FAERS Safety Report 4528109-2 (Version None)
Quarter: 2004Q4

REPORT INFORMATION
  Report Type: 
  Country: None (occurrence: None)
  Receive Date: 20041130
  Receipt Date: 20040726
  Transmission Date: 20050328
  Serious: No
  Sender: FDA-Public Use
  Company Number: WAES 0407USA02308

PATIENT
  Sex: Female

DRUGS (15)
  1. ZETIA [Suspect]
     Indication: DYSLIPIDAEMIA
     Dosage: 5 MG/DAILY/PO
     Route: 048
     Dates: start: 20040719, end: 20040723
  2. COREG [Concomitant]
  3. GLUCOPHAGE [Concomitant]
  4. HYDRODIURIL [Concomitant]
  5. ISORDIL [Concomitant]
  6. LOPID [Concomitant]
  7. PLAVIX [Concomitant]
  8. PRINIVIL [Concomitant]
  9. ASPIRIN [Concomitant]
  10. FLUOXETINE [Concomitant]
  11. FOLIC ACID [Concomitant]
  12. INSULIN, BIPHASIC ISOPHANE [Concomitant]
  13. LOVASTATIN [Concomitant]
  14. NITROGLYCERIN [Concomitant]
  15. OMEPRAZOLE [Concomitant]

REACTIONS (4)
  - ABNORMAL SENSATION IN EYE [None]
  - DIZZINESS [None]
  - PHOTOPHOBIA [None]
  - XANTHOPSIA [None]
